FAERS Safety Report 9675418 (Version 3)
Quarter: 2013Q4

REPORT INFORMATION
  Report Type: Spontaneous
  Country: US (occurrence: US)
  Receive Date: 20131107
  Receipt Date: 20131204
  Transmission Date: 20140711
  Serious: Yes (Other)
  Sender: FDA-Public Use
  Company Number: US-RB-059539-13

PATIENT
  Age: 76 Year
  Sex: Female

DRUGS (2)
  1. MUCINEX DM MAXIMUM STRENGTH [Suspect]
     Indication: BRONCHITIS
     Route: 048
     Dates: start: 20131028
  2. MUCINEX DM MAXIMUM STRENGTH [Suspect]
     Indication: COUGH
     Route: 048
     Dates: start: 20131101

REACTIONS (5)
  - Glaucoma [Not Recovered/Not Resolved]
  - Gait disturbance [Unknown]
  - Malaise [Unknown]
  - Off label use [Recovered/Resolved]
  - Dizziness [Recovered/Resolved]
